FAERS Safety Report 24451625 (Version 1)
Quarter: 2024Q4

REPORT INFORMATION
  Report Type: Spontaneous
  Country: JP (occurrence: JP)
  Receive Date: 20241017
  Receipt Date: 20241017
  Transmission Date: 20250115
  Serious: Yes (Other)
  Sender: DR REDDYS
  Company Number: JP-RDY-LIT/JPN/24/0015351

PATIENT
  Sex: Male

DRUGS (8)
  1. AZACITIDINE [Suspect]
     Active Substance: AZACITIDINE
     Indication: Trisomy 21
  2. AZACITIDINE [Suspect]
     Active Substance: AZACITIDINE
     Indication: Acute myeloid leukaemia
     Dosage: 75 (UNIT UNKNOWN) FOR CYCLES 2 TO 16
  3. CYTARABINE [Suspect]
     Active Substance: CYTARABINE
     Indication: Trisomy 21
  4. CYTARABINE [Suspect]
     Active Substance: CYTARABINE
     Indication: Acute myeloid leukaemia
     Dosage: 75 (UNIT UNKNOWN) FOR CYCLES 2 TO 16
  5. PIRARUBICIN [Suspect]
     Active Substance: PIRARUBICIN
     Indication: Trisomy 21
  6. PIRARUBICIN [Suspect]
     Active Substance: PIRARUBICIN
     Indication: Acute myeloid leukaemia
     Dosage: 75 (UNIT UNKNOWN) FOR CYCLES 2 TO 16
  7. VINCRISTINE [Suspect]
     Active Substance: VINCRISTINE
     Indication: Trisomy 21
  8. VINCRISTINE [Suspect]
     Active Substance: VINCRISTINE
     Indication: Acute myeloid leukaemia
     Dosage: 75 (UNIT UNKNOWN) FOR CYCLES 2 TO 16

REACTIONS (7)
  - Neutropenia [Unknown]
  - Leukopenia [Unknown]
  - Infection [Unknown]
  - Anaemia [Unknown]
  - Liver disorder [Unknown]
  - Rotavirus infection [Unknown]
  - Product use in unapproved indication [Unknown]
